FAERS Safety Report 15563835 (Version 2)
Quarter: 2019Q3

REPORT INFORMATION
  Report Type: Spontaneous
  Country: CA (occurrence: CA)
  Receive Date: 20181029
  Receipt Date: 20190731
  Transmission Date: 20191004
  Serious: Yes (Disabling, Other)
  Sender: FDA-Public Use
  Company Number: CA-ROCHE-2196266

PATIENT
  Sex: Female

DRUGS (4)
  1. CELLCEPT [Suspect]
     Active Substance: MYCOPHENOLATE MOFETIL\MYCOPHENOLATE MOFETIL HYDROCHLORIDE
     Indication: NEUROMYELITIS OPTICA SPECTRUM DISORDER
     Dosage: ONGOING: YES
     Route: 048
     Dates: start: 20180531
  2. CELLCEPT [Suspect]
     Active Substance: MYCOPHENOLATE MOFETIL\MYCOPHENOLATE MOFETIL HYDROCHLORIDE
     Indication: OFF LABEL USE
  3. RITUXAN [Suspect]
     Active Substance: RITUXIMAB
     Indication: NEUROMYELITIS OPTICA SPECTRUM DISORDER
     Dosage: DAY 1,15
     Route: 042
     Dates: start: 20180531
  4. RITUXAN [Suspect]
     Active Substance: RITUXIMAB
     Indication: OFF LABEL USE
     Route: 042
     Dates: start: 20190103

REACTIONS (6)
  - Off label use [Unknown]
  - Dizziness [Unknown]
  - Neuromyelitis optica spectrum disorder [Recovering/Resolving]
  - Neuralgia [Unknown]
  - Product use in unapproved indication [Unknown]
  - Treatment failure [Unknown]
